FAERS Safety Report 8479424-1 (Version None)
Quarter: 2012Q2

REPORT INFORMATION
  Report Type: 
  Country: None (occurrence: None)
  Receive Date: 20120629
  Receipt Date: 20120627
  Transmission Date: 20120825
  Serious: Yes (Other)
  Sender: FDA-Public Use
  Company Number: US-CELGENEUS-163-21880-12063767

PATIENT
  Sex: Male

DRUGS (4)
  1. LOVENOX [Concomitant]
     Route: 065
  2. REVLIMID [Suspect]
     Indication: MYELODYSPLASTIC SYNDROME
     Dosage: 10 MILLIGRAM
     Route: 048
     Dates: start: 20111201
  3. POTASSIUM CHLORIDE [Concomitant]
     Route: 065
  4. LASIX [Concomitant]
     Route: 065

REACTIONS (3)
  - SPLENOMEGALY [None]
  - PAIN [None]
  - FIBRIN D DIMER INCREASED [None]
